FAERS Safety Report 7980452-0 (Version None)
Quarter: 2011Q4

REPORT INFORMATION
  Report Type: 
  Country: None (occurrence: None)
  Receive Date: 20111214
  Receipt Date: 20111207
  Transmission Date: 20120403
  Serious: Yes (Hospitalization)
  Sender: FDA-Public Use
  Company Number: US-GLAXOSMITHKLINE-A0944456A

PATIENT
  Age: 70 Year
  Sex: Female

DRUGS (9)
  1. NEURONTIN [Concomitant]
  2. PLAVIX [Concomitant]
  3. ALBUTEROL [Concomitant]
  4. LOPRESSOR [Concomitant]
  5. FLOVENT [Suspect]
     Indication: ASTHMA
     Dosage: 3PUFF TWICE PER DAY
     Route: 055
     Dates: start: 20010101
  6. PRILOSEC [Concomitant]
  7. VASOTEC [Concomitant]
  8. METOPROLOL TARTRATE [Concomitant]
  9. ASPIRIN [Concomitant]

REACTIONS (5)
  - DRUG INEFFECTIVE [None]
  - DYSPNOEA [None]
  - WHEEZING [None]
  - PRODUCT QUALITY ISSUE [None]
  - OVERDOSE [None]
